FAERS Safety Report 9303128 (Version 1)
Quarter: 2013Q2

REPORT INFORMATION
  Report Type: Spontaneous
  Country: IT (occurrence: None)
  Receive Date: 20130516
  Receipt Date: 20130516
  Transmission Date: 20140414
  Serious: Yes (Hospitalization, Other)
  Sender: FDA-Public Use
  Company Number: AUR-APL-2013-03882

PATIENT
  Age: 43 Year
  Sex: Male

DRUGS (1)
  1. AMOXICILLIN (AMOXICILLIN) [Suspect]
     Indication: PRODUCT USED FOR UNKNOWN INDICATION
     Dosage: 1 DOSAGE FORMS, 1 D, ORAL
     Route: 048
     Dates: start: 20130401, end: 20130402

REACTIONS (4)
  - Anaphylactic shock [None]
  - Hypotension [None]
  - Generalised erythema [None]
  - Accident [None]
